FAERS Safety Report 6683178-9 (Version None)
Quarter: 2010Q2

REPORT INFORMATION
  Report Type: 
  Country: None (occurrence: None)
  Receive Date: 20100415
  Receipt Date: 20100405
  Transmission Date: 20101027
  Serious: Yes (Other)
  Sender: FDA-Public Use
  Company Number: BR-PFIZER INC-2010042793

PATIENT
  Age: 80 Year
  Sex: Male

DRUGS (5)
  1. LIPITOR [Suspect]
     Indication: BLOOD TRIGLYCERIDES
     Dosage: 40 MG, 1X/DAY, 1 TABLET
     Route: 048
     Dates: start: 20080813
  2. ATENOLOL [Suspect]
     Indication: HYPERTENSION
     Dosage: UNK
  3. METFORMIN HYDROCHLORIDE [Concomitant]
     Dosage: UNK
  4. PURAN T4 [Concomitant]
     Dosage: 75 MG, UNK
  5. ENDOFOLIN [Concomitant]
     Dosage: UNK

REACTIONS (4)
  - DIABETES MELLITUS [None]
  - PLATELET COUNT DECREASED [None]
  - THYROID MASS [None]
  - THYROID NEOPLASM [None]
